FAERS Safety Report 5771505-6 (Version None)
Quarter: 2008Q2

REPORT INFORMATION
  Report Type: 
  Country: None (occurrence: None)
  Receive Date: 20080613
  Receipt Date: 20080604
  Transmission Date: 20081010
  Serious: Yes (Life-Threatening)
  Sender: FDA-Public Use
  Company Number: US-TYCO HEALTHCARE/MALLINCKRODT-T200800927

PATIENT

DRUGS (5)
  1. OPTIRAY 300 [Suspect]
     Indication: COMPUTERISED TOMOGRAM
     Dosage: 100 ML, SINGLE
     Route: 042
     Dates: start: 20080529, end: 20080529
  2. ALEVE [Concomitant]
     Dosage: UNK, BID
     Route: 048
  3. LEVAQUIN [Concomitant]
     Dosage: 50 MG, QD
     Route: 048
  4. XANAX [Concomitant]
     Dosage: 100 MG, BID
     Route: 048
  5. ONDANSETRON [Concomitant]

REACTIONS (4)
  - ANAPHYLACTIC REACTION [None]
  - LIP SWELLING [None]
  - THROAT IRRITATION [None]
  - UNRESPONSIVE TO STIMULI [None]
